FAERS Safety Report 5102870-0 (Version None)
Quarter: 2006Q3

REPORT INFORMATION
  Report Type: 
  Country: None (occurrence: None)
  Receive Date: 20060907
  Receipt Date: 20060810
  Transmission Date: 20061208
  Serious: Yes (Hospitalization, Other)
  Sender: FDA-Public Use
  Company Number: 2006RR-03448

PATIENT
  Age: 31 Year
  Sex: Male

DRUGS (1)
  1. ISOTRETINOIN [Suspect]
     Indication: ACNE
     Dosage: 80 MG, QD, ORAL
     Route: 048

REACTIONS (10)
  - ARTHRALGIA [None]
  - COUGH [None]
  - CSF PROTEIN ABNORMAL [None]
  - DYSSTASIA [None]
  - EPISTAXIS [None]
  - GUILLAIN-BARRE SYNDROME [None]
  - INFLUENZA LIKE ILLNESS [None]
  - LIP DRY [None]
  - PARAESTHESIA [None]
  - PARESIS [None]
